FAERS Safety Report 20393279 (Version 1)
Quarter: 2022Q1

REPORT INFORMATION
  Report Type: Report from Study
  Country: US (occurrence: US)
  Receive Date: 20220128
  Receipt Date: 20220128
  Transmission Date: 20220423
  Serious: Yes (Life-Threatening, Hospitalization)
  Sender: FDA-Public Use
  Company Number: US-TEVA-2022-US-2002220

PATIENT
  Age: 16 Year
  Sex: Male
  Weight: 68.1 kg

DRUGS (14)
  1. VINCRISTINE [Suspect]
     Active Substance: VINCRISTINE
     Indication: Acute lymphocytic leukaemia
     Route: 042
     Dates: start: 20161011
  2. PREDNISONE [Suspect]
     Active Substance: PREDNISONE
     Indication: Acute lymphocytic leukaemia
     Dosage: 70 MILLIGRAM DAILY;
     Route: 048
     Dates: start: 20161011, end: 20191112
  3. PREDNISONE [Suspect]
     Active Substance: PREDNISONE
     Dosage: 70 MILLIGRAM DAILY;
     Route: 048
     Dates: start: 20200102
  4. METHOTREXATE [Suspect]
     Active Substance: METHOTREXATE
     Indication: Acute lymphocytic leukaemia
     Dosage: 35 MILLIGRAM, WEEKLY (15 MG/M2); ORAL
     Route: 048
     Dates: start: 20170130, end: 20191107
  5. METHOTREXATE [Suspect]
     Active Substance: METHOTREXATE
     Dosage: 17.2 MILLIGRAM, WEEKLY (10 MG/M2/DOSE); ORAL
     Route: 048
     Dates: start: 20191212
  6. METHOTREXATE [Suspect]
     Active Substance: METHOTREXATE
     Indication: Acute lymphocytic leukaemia
     Route: 037
     Dates: start: 20161018, end: 20190913
  7. METHOTREXATE [Suspect]
     Active Substance: METHOTREXATE
     Route: 037
     Dates: start: 20200102
  8. RUXOLITINIB [Suspect]
     Active Substance: RUXOLITINIB
     Indication: Acute lymphocytic leukaemia
     Dosage: 180 MILLIGRAM DAILY;
     Route: 048
     Dates: start: 20161116, end: 20191205
  9. RUXOLITINIB [Suspect]
     Active Substance: RUXOLITINIB
     Dosage: 170 MILLIGRAM DAILY;
     Route: 048
     Dates: start: 20191212
  10. MERCAPTOPURINE [Suspect]
     Active Substance: MERCAPTOPURINE
     Indication: Acute lymphocytic leukaemia
     Route: 048
     Dates: start: 20161116, end: 20191120
  11. MERCAPTOPURINE [Suspect]
     Active Substance: MERCAPTOPURINE
     Route: 048
     Dates: start: 20191212
  12. ALBUTEROL SULFATE [Concomitant]
     Active Substance: ALBUTEROL SULFATE
     Dates: start: 20170928, end: 20190131
  13. ZOFRAN [Concomitant]
     Active Substance: ONDANSETRON HYDROCHLORIDE
     Dates: start: 20161116
  14. LORATADINE [Concomitant]
     Active Substance: LORATADINE
     Dates: start: 20170915

REACTIONS (6)
  - Pneumonia [Recovered/Resolved]
  - Adenovirus infection [Recovered/Resolved]
  - Pyrexia [Recovered/Resolved]
  - Parainfluenzae virus infection [Recovered/Resolved]
  - Febrile neutropenia [Recovered/Resolved]
  - Adenovirus infection [Recovered/Resolved]

NARRATIVE: CASE EVENT DATE: 20191114
